FAERS Safety Report 24425610 (Version 3)
Quarter: 2024Q4

REPORT INFORMATION
  Report Type: Report from Study
  Country: US (occurrence: US)
  Receive Date: 20241011
  Receipt Date: 20241115
  Transmission Date: 20250115
  Serious: No
  Sender: ABBVIE
  Company Number: US-ABBVIE-5957819

PATIENT
  Age: 59 Year
  Sex: Male
  Weight: 117 kg

DRUGS (1)
  1. CREON [Suspect]
     Active Substance: PANCRELIPASE AMYLASE\PANCRELIPASE LIPASE\PANCRELIPASE PROTEASE
     Indication: Pancreatic failure
     Dosage: CREON 3 CAPSULE WITH MEALS AND 1 CAPSULE WITH SNACK?FORM STRENGTH: 36000 UNIT
     Route: 048
     Dates: start: 20240630

REACTIONS (2)
  - Arthralgia [Recovered/Resolved]
  - Pain [Recovered/Resolved]

NARRATIVE: CASE EVENT DATE: 20241001
